FAERS Safety Report 6106825-9 (Version None)
Quarter: 2009Q1

REPORT INFORMATION
  Report Type: 
  Country: None (occurrence: None)
  Receive Date: 20090304
  Receipt Date: 20090217
  Transmission Date: 20090719
  Serious: Yes (Hospitalization, Other)
  Sender: FDA-Public Use
  Company Number: 2009000457

PATIENT
  Age: 82 Year

DRUGS (10)
  1. ERLOTINIB                  (TABLET) (ERLOTINIB) [Suspect]
     Indication: NON-SMALL CELL LUNG CANCER
     Dosage: ORAL
     Route: 048
  2. TRIATEC 5 (RAMIPRIL) [Concomitant]
  3. ATORVASTATIN CALCIUM [Concomitant]
  4. TRAMADOL HCL [Concomitant]
  5. ACETAMINOPHEN [Concomitant]
  6. FORLAX (MACROGOL) [Concomitant]
  7. SPIRIVA [Concomitant]
  8. FORADIL [Concomitant]
  9. INNOHEP [Concomitant]
  10. TOPALGIC (SUPROFEN) [Concomitant]

REACTIONS (2)
  - CONFUSIONAL STATE [None]
  - GENERAL PHYSICAL HEALTH DETERIORATION [None]
